FAERS Safety Report 23933660 (Version 1)
Quarter: 2024Q2

REPORT INFORMATION
  Report Type: Spontaneous
  Country: US (occurrence: US)
  Receive Date: 20240603
  Receipt Date: 20240603
  Transmission Date: 20240716
  Serious: No
  Sender: FDA-Public Use
  Company Number: US-INCYTE CORPORATION-2024IN004904

PATIENT

DRUGS (1)
  1. OPZELURA [Suspect]
     Active Substance: RUXOLITINIB PHOSPHATE
     Dosage: 60GRAM, 1.5 PERCENT, BID, APPLY A THIN LAYER TO AFFECTED AREA(S) TWICE DAILY AS DIRECTED
     Route: 061
     Dates: start: 20240301

REACTIONS (2)
  - Chest pain [Unknown]
  - Gastrooesophageal reflux disease [Unknown]
